FAERS Safety Report 21488506 (Version 1)
Quarter: 2022Q4

REPORT INFORMATION
  Report Type: Spontaneous
  Country: US (occurrence: US)
  Receive Date: 20221021
  Receipt Date: 20221021
  Transmission Date: 20230113
  Serious: No
  Sender: FDA-Public Use
  Company Number: US-CELLTRION INC.-2022US005222

PATIENT

DRUGS (2)
  1. INFLECTRA [Suspect]
     Active Substance: INFLIXIMAB-DYYB
     Indication: Psoriatic arthropathy
     Dosage: 5MG PER KG EVERY 8 WEEKS, PERIPHERAL IV (DOSAGE FORM: 100MG IN 20ML VIAL AS A POWDER)
     Route: 042
     Dates: start: 20220329
  2. INFLECTRA [Suspect]
     Active Substance: INFLIXIMAB-DYYB
     Dosage: UNK
     Route: 042
     Dates: start: 20220401

REACTIONS (8)
  - Impaired work ability [Unknown]
  - Insurance issue [Unknown]
  - Emotional disorder [Unknown]
  - Pain [Unknown]
  - Infusion related reaction [Unknown]
  - Malaise [Unknown]
  - Therapeutic response changed [Unknown]
  - Incorrect dose administered [Unknown]

NARRATIVE: CASE EVENT DATE: 20220401
